FAERS Safety Report 24225442 (Version 1)
Quarter: 2024Q3

REPORT INFORMATION
  Report Type: Spontaneous
  Country: JP (occurrence: JP)
  Receive Date: 20240820
  Receipt Date: 20240820
  Transmission Date: 20241016
  Serious: Yes (Hospitalization, Other)
  Sender: MEDLEY PHARMACEUTICALS
  Company Number: JP-MEDLEY-000022

PATIENT
  Age: 88 Year
  Sex: Female
  Weight: 33 kg

DRUGS (5)
  1. DIAZEPAM [Suspect]
     Active Substance: DIAZEPAM
     Indication: Seizure
     Route: 042
  2. FOSPHENYTOIN SODIUM HEPTAHYDRATE [Suspect]
     Active Substance: FOSPHENYTOIN SODIUM HEPTAHYDRATE
     Indication: Status epilepticus
     Dosage: 750 MG ON THE FIRST DAY INFUSED VIA IV FOR 30 MINUTES
     Route: 042
  3. FOSPHENYTOIN SODIUM HEPTAHYDRATE [Suspect]
     Active Substance: FOSPHENYTOIN SODIUM HEPTAHYDRATE
     Indication: Status epilepticus
     Dosage: 262 MG/DAY ON THE SECOND DAY INFUSED VIA IV FOR 30 MINUTES
     Route: 042
  4. PHENOBARBITAL [Suspect]
     Active Substance: PHENOBARBITAL
     Indication: Status epilepticus
     Dosage: 625 MG/DAY INFUSED VIA IV OVER 10 MINUTES
     Route: 042
  5. LACOSAMIDE [Suspect]
     Active Substance: LACOSAMIDE
     Indication: Seizure
     Route: 065

REACTIONS (4)
  - Treatment failure [Unknown]
  - Status epilepticus [Recovered/Resolved]
  - Drug resistance [Unknown]
  - Depressed level of consciousness [Recovered/Resolved]
